FAERS Safety Report 24786140 (Version 1)
Quarter: 2024Q4

REPORT INFORMATION
  Report Type: Spontaneous
  Country: US (occurrence: US)
  Receive Date: 20241229
  Receipt Date: 20241229
  Transmission Date: 20250114
  Serious: No
  Sender: ARDELYX
  Company Number: US-ARDELYX-2024ARDX008292

PATIENT
  Age: 60 Year
  Sex: Female

DRUGS (1)
  1. XPHOZAH [Suspect]
     Active Substance: TENAPANOR HYDROCHLORIDE
     Indication: Hyperphosphataemia
     Dosage: UNK, BID
     Route: 065
     Dates: start: 202411, end: 2024

REACTIONS (2)
  - Headache [Recovered/Resolved]
  - Feeling hot [Recovered/Resolved]
